FAERS Safety Report 24223856 (Version 1)
Quarter: 2024Q3

REPORT INFORMATION
  Report Type: Spontaneous
  Country: US (occurrence: None)
  Receive Date: 20240817
  Receipt Date: 20240817
  Transmission Date: 20241017
  Serious: Yes (Other)
  Sender: Public
  Company Number: None

PATIENT
  Age: 63 Year
  Sex: Female
  Weight: 119.25 kg

DRUGS (1)
  1. CETIRIZINE HYDROCHLORIDE [Suspect]
     Active Substance: CETIRIZINE HYDROCHLORIDE
     Indication: Allergy prophylaxis
     Dosage: ?1 TABLET ORAL
     Route: 048
     Dates: start: 20220620, end: 20240808

REACTIONS (3)
  - Pruritus [None]
  - Swelling [None]
  - Withdrawal syndrome [None]

NARRATIVE: CASE EVENT DATE: 20240810
